FAERS Safety Report 8905898 (Version 2)
Quarter: 2013Q2

REPORT INFORMATION
  Report Type: Spontaneous
  Country: US (occurrence: US)
  Receive Date: 20121113
  Receipt Date: 20130430
  Transmission Date: 20140414
  Serious: Yes (Hospitalization)
  Sender: FDA-Public Use
  Company Number: US-ASTRAZENECA-2012SE84868

PATIENT
  Age: 51 Year
  Sex: Female

DRUGS (2)
  1. SYMBICORT PMDI [Suspect]
     Dosage: UNKNOWN
     Route: 055
  2. SEROQUEL XR [Suspect]
     Route: 048

REACTIONS (6)
  - Road traffic accident [Unknown]
  - Joint injury [Unknown]
  - Abdominal discomfort [Unknown]
  - Memory impairment [Unknown]
  - Pain [Unknown]
  - Tremor [Unknown]
